FAERS Safety Report 19486608 (Version 1)
Quarter: 2021Q3

REPORT INFORMATION
  Report Type: Spontaneous
  Country: CA (occurrence: CA)
  Receive Date: 20210702
  Receipt Date: 20210702
  Transmission Date: 20211014
  Serious: Yes (Other)
  Sender: FDA-Public Use
  Company Number: CA-ROCHE-2859069

PATIENT
  Age: 60 Year
  Sex: Female

DRUGS (16)
  1. ACETAMINOPHEN. [Concomitant]
     Active Substance: ACETAMINOPHEN
     Indication: PREMEDICATION
     Route: 048
  2. RITUXIMAB. [Suspect]
     Active Substance: RITUXIMAB
     Indication: IMMUNOGLOBULIN G4 RELATED DISEASE
  3. RITUXIMAB. [Suspect]
     Active Substance: RITUXIMAB
     Indication: IMMUNOGLOBULIN G4 RELATED DISEASE
     Route: 065
  4. GLICLAZIDE [Concomitant]
     Active Substance: GLICLAZIDE
  5. RITUXIMAB. [Suspect]
     Active Substance: RITUXIMAB
     Indication: PANCREATITIS
     Route: 041
  6. METHYLPREDNISOLONE. [Concomitant]
     Active Substance: METHYLPREDNISOLONE
     Indication: PREMEDICATION
     Route: 042
  7. RAMIPRIL. [Concomitant]
     Active Substance: RAMIPRIL
     Route: 065
  8. RITUXIMAB. [Suspect]
     Active Substance: RITUXIMAB
     Indication: PANCREATITIS
     Route: 065
  9. DIPHENHYDRAMINE. [Concomitant]
     Active Substance: DIPHENHYDRAMINE
     Indication: PREMEDICATION
     Route: 048
  10. SYNTHROID [Concomitant]
     Active Substance: LEVOTHYROXINE SODIUM
  11. RITUXIMAB. [Suspect]
     Active Substance: RITUXIMAB
     Indication: BILIARY TRACT DISORDER
  12. METFORMIN [Concomitant]
     Active Substance: METFORMIN HYDROCHLORIDE
  13. PRAVASTATIN. [Concomitant]
     Active Substance: PRAVASTATIN
  14. PREDNISONE. [Concomitant]
     Active Substance: PREDNISONE
  15. RISEDRONATE [Concomitant]
     Active Substance: RISEDRONATE SODIUM
  16. RITUXIMAB. [Suspect]
     Active Substance: RITUXIMAB
     Indication: BILIARY TRACT DISORDER

REACTIONS (5)
  - Blood pressure diastolic abnormal [Unknown]
  - Off label use [Unknown]
  - Heart rate decreased [Unknown]
  - Hypertension [Unknown]
  - Blood pressure diastolic decreased [Unknown]
